FAERS Safety Report 17244313 (Version 6)
Quarter: 2021Q3

REPORT INFORMATION
  Report Type: Spontaneous
  Country: US (occurrence: US)
  Receive Date: 20200107
  Receipt Date: 20210902
  Transmission Date: 20211014
  Serious: Yes (Other)
  Sender: FDA-Public Use
  Company Number: US-GILEAD-2019-0444762

PATIENT
  Age: 54 Year
  Sex: Male

DRUGS (13)
  1. FLUOXETINE [Concomitant]
     Active Substance: FLUOXETINE HYDROCHLORIDE
  2. LIDOCAINE. [Concomitant]
     Active Substance: LIDOCAINE
  3. ROPINIROLE. [Concomitant]
     Active Substance: ROPINIROLE
  4. TRUVADA [Suspect]
     Active Substance: EMTRICITABINE\TENOFOVIR DISOPROXIL FUMARATE
     Indication: HIV INFECTION
     Dosage: 1 DOSAGE FORM, QD
     Route: 048
     Dates: start: 20061102, end: 20180206
  5. OMEPRAZOLE. [Concomitant]
     Active Substance: OMEPRAZOLE
  6. HYDROCODONE BITARTRATE AND ACETAMINOPHEN [Concomitant]
     Active Substance: ACETAMINOPHEN\HYDROCODONE BITARTRATE
  7. QUETIAPINE. [Concomitant]
     Active Substance: QUETIAPINE
  8. TRIHEXYPHEN [Concomitant]
  9. HYDROXYZINE HCL [Concomitant]
     Active Substance: HYDROXYZINE HYDROCHLORIDE
  10. PRAVASTATIN. [Concomitant]
     Active Substance: PRAVASTATIN
  11. KALETRA [Concomitant]
     Active Substance: LOPINAVIR\RITONAVIR
     Dosage: 2 DOSAGE FORM
     Route: 048
     Dates: start: 20061102
  12. GABAPENTIN. [Concomitant]
     Active Substance: GABAPENTIN
  13. CIPROFLOXACIN. [Concomitant]
     Active Substance: CIPROFLOXACIN

REACTIONS (11)
  - Multiple fractures [Not Recovered/Not Resolved]
  - Chronic kidney disease [Not Recovered/Not Resolved]
  - Anhedonia [Unknown]
  - Economic problem [Unknown]
  - Bone density decreased [Unknown]
  - Pain [Unknown]
  - Anxiety [Unknown]
  - Osteoporosis [Recovered/Resolved]
  - Fanconi syndrome acquired [Recovered/Resolved]
  - Renal failure [Unknown]
  - Emotional distress [Unknown]

NARRATIVE: CASE EVENT DATE: 20170915
